FAERS Safety Report 7413395-1 (Version None)
Quarter: 2011Q2

REPORT INFORMATION
  Report Type: 
  Country: None (occurrence: None)
  Receive Date: 20110413
  Receipt Date: 20110409
  Transmission Date: 20111010
  Serious: Yes (Other)
  Sender: FDA-Public Use
  Company Number: US-PFIZER INC-2011071043

PATIENT
  Sex: Female
  Weight: 66.213 kg

DRUGS (3)
  1. COSAMIN [Concomitant]
     Indication: OSTEOARTHRITIS
     Dosage: 400/500 MG, 1X/DAY
  2. AROMASIN [Suspect]
     Indication: NEOPLASM PROPHYLAXIS
     Dosage: 25 MG, 1X/DAY
     Route: 048
     Dates: start: 20110101
  3. CALTRATE 600+D [Concomitant]
     Indication: OSTEOARTHRITIS
     Dosage: 600 MG, 1X/DAY

REACTIONS (6)
  - GINGIVAL SWELLING [None]
  - GINGIVAL PAIN [None]
  - LOCAL SWELLING [None]
  - PAIN IN JAW [None]
  - TOOTH INFECTION [None]
  - SWELLING FACE [None]
